FAERS Safety Report 16707329 (Version 1)
Quarter: 2019Q3

REPORT INFORMATION
  Report Type: Spontaneous
  Country: US (occurrence: US)
  Receive Date: 20190629
  Receipt Date: 20190629
  Transmission Date: 20191004
  Serious: Yes (Hospitalization)
  Sender: FDA-Public Use
  Company Number: None

PATIENT
  Age: 68 Year
  Sex: Male

DRUGS (1)
  1. WARFARIN [Suspect]
     Active Substance: WARFARIN
     Indication: ATRIAL FIBRILLATION
     Dates: start: 20171016

REACTIONS (3)
  - Gastrointestinal haemorrhage [None]
  - International normalised ratio increased [None]
  - Packed red blood cell transfusion [None]

NARRATIVE: CASE EVENT DATE: 20190505
